FAERS Safety Report 13250952 (Version 1)
Quarter: 2017Q1

REPORT INFORMATION
  Report Type: Spontaneous
  Country: US (occurrence: US)
  Receive Date: 20170220
  Receipt Date: 20170220
  Transmission Date: 20170428
  Serious: No
  Sender: FDA-Public Use
  Company Number: US-TEVA-717642USA

PATIENT
  Age: 90 Year
  Sex: Female
  Weight: 52.21 kg

DRUGS (3)
  1. CLOTRIMAZOLE. [Concomitant]
     Active Substance: CLOTRIMAZOLE
     Route: 067
     Dates: start: 20161115
  2. DOXYCYCLINE. [Suspect]
     Active Substance: DOXYCYCLINE
  3. AMOXICILLIN. [Suspect]
     Active Substance: AMOXICILLIN
     Indication: RASH

REACTIONS (1)
  - Fungal infection [Unknown]

NARRATIVE: CASE EVENT DATE: 2016
